FAERS Safety Report 6298953-2 (Version None)
Quarter: 2009Q3

REPORT INFORMATION
  Report Type: 
  Country: None (occurrence: None)
  Receive Date: 20090806
  Receipt Date: 20090729
  Transmission Date: 20100115
  Serious: Yes (Hospitalization)
  Sender: FDA-Public Use
  Company Number: FR-JNJFOC-20090800095

PATIENT
  Sex: Male

DRUGS (15)
  1. DAKTARIN [Suspect]
     Route: 002
  2. DAKTARIN [Suspect]
     Indication: ORAL FUNGAL INFECTION
     Route: 002
  3. CERIS [Suspect]
     Indication: DRUG USE FOR UNKNOWN INDICATION
     Route: 048
  4. FUNGIZONE [Suspect]
     Indication: ORAL FUNGAL INFECTION
     Route: 048
  5. TRAVATAN [Concomitant]
  6. FORTZAAR [Concomitant]
     Dosage: 10MG/ 25MG DAILY
     Route: 048
  7. ZYLORIC [Concomitant]
     Route: 048
  8. ZYPREXA [Concomitant]
  9. DEROXAT [Concomitant]
  10. XANAX [Concomitant]
  11. SULFARLEM [Concomitant]
  12. ZANIDIP [Concomitant]
  13. NEBILOX [Concomitant]
  14. AZOPT [Concomitant]
  15. PRAVADUAL [Concomitant]

REACTIONS (1)
  - HENOCH-SCHONLEIN PURPURA [None]
